FAERS Safety Report 5128999-9 (Version None)
Quarter: 2006Q4

REPORT INFORMATION
  Report Type: 
  Country: None (occurrence: None)
  Receive Date: 20061016
  Receipt Date: 20061016
  Transmission Date: 20070319
  Serious: Yes (Other)
  Sender: FDA-Public Use
  Company Number: None

PATIENT
  Age: 14 Year
  Sex: Male
  Weight: 54.4316 kg

DRUGS (1)
  1. TYLENOL (CAPLET) [Suspect]
     Indication: PAIN IN EXTREMITY
     Dosage: 2 CAPLETS, 650MG EVERY 8 HOURS PO
     Route: 048
     Dates: start: 20061015, end: 20061015

REACTIONS (4)
  - ERYTHEMA [None]
  - PRURITUS GENERALISED [None]
  - SWELLING [None]
  - URTICARIA GENERALISED [None]
